FAERS Safety Report 7744074-9 (Version None)
Quarter: 2011Q3

REPORT INFORMATION
  Report Type: 
  Country: None (occurrence: None)
  Receive Date: 20110912
  Receipt Date: 20110901
  Transmission Date: 20111222
  Serious: Yes (Other)
  Sender: FDA-Public Use
  Company Number: US-ASTRAZENECA-2011SE52883

PATIENT
  Sex: Male

DRUGS (1)
  1. SEROQUEL [Suspect]
     Route: 048

REACTIONS (7)
  - MYOCARDIAL INFARCTION [None]
  - BIPOLAR I DISORDER [None]
  - IRRITABILITY [None]
  - CEREBROVASCULAR ACCIDENT [None]
  - BIPOLAR DISORDER [None]
  - IMPATIENCE [None]
  - HYPERTENSION [None]
